FAERS Safety Report 4901203-X (Version None)
Quarter: 2006Q1

REPORT INFORMATION
  Report Type: 
  Country: None (occurrence: None)
  Receive Date: 20060202
  Receipt Date: 20060120
  Transmission Date: 20060701
  Serious: Yes (Hospitalization, Other)
  Sender: FDA-Public Use
  Company Number: 2006010131

PATIENT
  Age: 74 Year
  Sex: Female
  Weight: 105.6881 kg

DRUGS (13)
  1. GLUCOTROL XL [Suspect]
     Indication: BLOOD GLUCOSE
     Dosage: 10 MG (5 MG, 2 IN 1 D), ORAL
     Route: 048
  2. ASPIRIN [Concomitant]
  3. DIGOXIN [Concomitant]
  4. ATENOLOL [Concomitant]
  5. VERAPAMIL [Concomitant]
  6. LISINOPRIL [Concomitant]
  7. GLUCOPHAGE [Concomitant]
  8. NEXIUM [Concomitant]
  9. EFFEXOR [Concomitant]
  10. NEURONTIN [Concomitant]
  11. COMBIVENT [Concomitant]
  12. POTASSIUM (POTASSIUM) [Concomitant]
  13. FUROSEMIDE [Concomitant]

REACTIONS (1)
  - CORONARY ARTERY OCCLUSION [None]
